FAERS Safety Report 15562169 (Version 1)
Quarter: 2018Q4

REPORT INFORMATION
  Report Type: Report from Study
  Country: US (occurrence: US)
  Receive Date: 20181029
  Receipt Date: 20181029
  Transmission Date: 20190205
  Serious: Yes (Other)
  Sender: FDA-Public Use
  Company Number: US-SA-2018SA296856

PATIENT
  Age: 42 Year
  Sex: Female

DRUGS (2)
  1. INSULIN GLARGINE [Suspect]
     Active Substance: INSULIN GLARGINE
     Indication: DIABETES MELLITUS
     Dosage: UNK, QD
     Route: 058
  2. LEVOTHYROXINE. [Concomitant]
     Active Substance: LEVOTHYROXINE

REACTIONS (7)
  - Thyroid cancer [Unknown]
  - Protein S deficiency [Unknown]
  - Iron deficiency anaemia [Unknown]
  - Fatigue [Unknown]
  - Gastric bypass [Unknown]
  - Haemorrhage [Unknown]
  - Abnormal loss of weight [Unknown]
